FAERS Safety Report 21477098 (Version 3)
Quarter: 2022Q4

REPORT INFORMATION
  Report Type: Other
  Country: BE (occurrence: BE)
  Receive Date: 20221019
  Receipt Date: 20221124
  Transmission Date: 20230113
  Serious: Yes (Other)
  Sender: FDA-Public Use
  Company Number: BE-SEATTLE GENETICS-2022SGN08981

PATIENT
  Age: 49 Year
  Sex: Female
  Weight: 62.8 kg

DRUGS (7)
  1. TRASTUZUMAB [Suspect]
     Active Substance: TRASTUZUMAB
     Indication: Breast cancer metastatic
     Dosage: 600 MG ON DAY 1 OF EVERY 21-DAY CYCLE
     Route: 065
     Dates: start: 20220616
  2. CAPECITABINE [Suspect]
     Active Substance: CAPECITABINE
     Indication: Breast cancer metastatic
     Dosage: 1000 MG/M2, BID DAYS 1-14 ONLY OF A 21-DAY CYCLE
     Route: 065
     Dates: start: 20220616
  3. TUCATINIB [Suspect]
     Active Substance: TUCATINIB
     Indication: Breast cancer metastatic
     Dosage: 300 MG BID
     Route: 065
     Dates: start: 20220616
  4. PANTOPRAZOLE SODIUM [Concomitant]
     Active Substance: PANTOPRAZOLE SODIUM
     Indication: Prophylaxis
     Dosage: 20 MG/DAY
     Dates: start: 20211104
  5. KEPPRA [Concomitant]
     Active Substance: LEVETIRACETAM
     Indication: Prophylaxis
     Dosage: 1000 MG/DAY
     Dates: start: 20211104
  6. MEDROL [Concomitant]
     Active Substance: METHYLPREDNISOLONE
     Indication: Metastases to central nervous system
     Dosage: 4 MG EVERY 2 DAYS
     Dates: start: 20220310, end: 20220727
  7. MEDROL [Concomitant]
     Active Substance: METHYLPREDNISOLONE
     Dosage: 8 MG/DAY
     Dates: start: 20220728

REACTIONS (3)
  - Hepatotoxicity [Unknown]
  - Platelet count decreased [Unknown]
  - Palmar-plantar erythrodysaesthesia syndrome [Unknown]

NARRATIVE: CASE EVENT DATE: 20220804
